FAERS Safety Report 15291568 (Version 1)
Quarter: 2018Q3

REPORT INFORMATION
  Report Type: Spontaneous
  Country: JP (occurrence: JP)
  Receive Date: 20180817
  Receipt Date: 20180817
  Transmission Date: 20181010
  Serious: Yes (Other)
  Sender: FDA-Public Use
  Company Number: JP-PFIZER INC-2018333007

PATIENT
  Age: 39 Year
  Sex: Male
  Weight: 57 kg

DRUGS (1)
  1. CELECOX [Suspect]
     Active Substance: CELECOXIB
     Dosage: UNK UNK, UNKNOWN FREQ.
     Route: 048
     Dates: start: 201808

REACTIONS (9)
  - Coma [Unknown]
  - Mydriasis [Unknown]
  - Renal impairment [Unknown]
  - Electrocardiogram abnormal [Unknown]
  - Hepatic function abnormal [Unknown]
  - Intentional overdose [Unknown]
  - Suicide attempt [Unknown]
  - Respiratory depression [Unknown]
  - Electrocardiogram QRS complex prolonged [Unknown]

NARRATIVE: CASE EVENT DATE: 20180807
